FAERS Safety Report 24245341 (Version 1)
Quarter: 2024Q3

REPORT INFORMATION
  Report Type: Report from Study
  Country: US (occurrence: None)
  Receive Date: 20240824
  Receipt Date: 20240824
  Transmission Date: 20241017
  Serious: Yes (Hospitalization, Other)
  Sender: ASTRAZENECA
  Company Number: 2024A189905

PATIENT
  Sex: Female

DRUGS (2)
  1. FASENRA [Suspect]
     Active Substance: BENRALIZUMAB
     Indication: Asthma
     Dosage: RX 2 INJECT 30 MG/ML (1 PEN) SUBCUTANEOUSLY AT WEEK 8 THEN EVERY 8 WEEKS THEREAFTER
     Route: 058
  2. PREDNISONE [Concomitant]
     Active Substance: PREDNISONE

REACTIONS (3)
  - Myocardial infarction [Unknown]
  - Fatigue [Unknown]
  - Asthenia [Unknown]
